FAERS Safety Report 7444195-4 (Version None)
Quarter: 2011Q2

REPORT INFORMATION
  Report Type: 
  Country: None (occurrence: None)
  Receive Date: 20110429
  Receipt Date: 20100407
  Transmission Date: 20111010
  Serious: No
  Sender: FDA-Public Use
  Company Number: US-BAYER-201019820NA

PATIENT
  Sex: Female

DRUGS (2)
  1. YAZ [Suspect]
     Dosage: 1 DF (DAILY DOSE), QD, ORAL
     Route: 048
  2. YAZ [Suspect]
     Indication: PREMENSTRUAL SYNDROME
     Dosage: 1 DF (DAILY DOSE), QD, ORAL
     Route: 048

REACTIONS (2)
  - BREAST TENDERNESS [None]
  - ABDOMINAL DISTENSION [None]
